FAERS Safety Report 7660565-3 (Version None)
Quarter: 2011Q3

REPORT INFORMATION
  Report Type: 
  Country: None (occurrence: None)
  Receive Date: 20110805
  Receipt Date: 20101027
  Transmission Date: 20111222
  Serious: No
  Sender: FDA-Public Use
  Company Number: US-ABBOTT-10P-163-0682297-00

PATIENT
  Sex: Male
  Weight: 77.18 kg

DRUGS (4)
  1. LIPITOR [Suspect]
     Indication: HIGH DENSITY LIPOPROTEIN DECREASED
     Route: 048
     Dates: start: 20090101, end: 20091001
  2. NIASPAN [Suspect]
     Route: 048
     Dates: start: 20091101, end: 20100201
  3. NIASPAN [Suspect]
     Dates: start: 20100301
  4. NIASPAN [Suspect]
     Indication: HIGH DENSITY LIPOPROTEIN DECREASED
     Dates: start: 20040101, end: 20081201

REACTIONS (3)
  - PRURITUS [None]
  - MYALGIA [None]
  - HEPATIC ENZYME INCREASED [None]
